FAERS Safety Report 9337805 (Version 4)
Quarter: 2013Q3

REPORT INFORMATION
  Report Type: Report from Study
  Country: US (occurrence: US)
  Receive Date: 20130607
  Receipt Date: 20130912
  Transmission Date: 20140515
  Serious: Yes (Other)
  Sender: FDA-Public Use
  Company Number: US-009507513-1304USA017287

PATIENT
  Age: 39 Year
  Sex: Male
  Weight: 84.63 kg

DRUGS (19)
  1. BOCEPREVIR [Suspect]
     Indication: HEPATITIS C
     Dosage: 800 MG, TID
     Route: 048
     Dates: start: 20120913, end: 20130425
  2. PEGINTERFERON ALFA-2B [Suspect]
     Indication: HEPATITIS C
     Dosage: 150 MICROGRAM, QW
     Route: 058
     Dates: start: 20120816
  3. RIBAVIRIN [Suspect]
     Indication: HEPATITIS C
     Dosage: 600 MG, BID
     Route: 048
     Dates: start: 20120816, end: 20130522
  4. RIBAVIRIN [Suspect]
     Dosage: 400MG IN AM AND 600MG IN PM
     Route: 048
     Dates: start: 20130529
  5. OXYCODONE HYDROCHLORIDE [Concomitant]
     Dosage: 10 MG, EVERY 4 HOURS AS NEEDED
     Route: 048
  6. DICLOXACILLIN [Concomitant]
     Dosage: 500 MG, QID
     Route: 048
  7. VALTREX [Concomitant]
     Dosage: 500 MG, BID
     Route: 048
  8. COMFORT (ASPIRIN) [Concomitant]
     Dosage: UNK, BID
  9. NOVOLOG MIX 70/30 [Concomitant]
     Dosage: 25 IU, BID
     Route: 058
  10. LOMOTIL (ATROPINE SULFATE (+) DIPHENOXYLATE HYDROCHLORIDE) [Concomitant]
     Dosage: 1 DF, BEFORE EACH LOOSE STOOL
     Route: 048
  11. VANCOMYCIN [Concomitant]
     Dosage: INFUSE 1G VANCOMYCIN/0.9% NS 250ML IV OVER 90 MINUTES IN CLINIC
     Route: 042
  12. CLINDAMYCIN HYDROCHLORIDE [Concomitant]
     Dosage: 300 MG, TID
     Route: 048
  13. LEVAQUIN [Concomitant]
     Dosage: 750 MG, UNK
     Route: 048
  14. EPOGEN [Concomitant]
     Dosage: 2 ML, UNK
     Route: 058
  15. COMPAZINE [Concomitant]
     Indication: NAUSEA
     Dosage: 1 OR 2 TABLETS BY MOUTH EVERY 6 HOURS AS NEEDED
  16. DEPO-TESTOSTERONE [Concomitant]
     Dosage: 1ML (200MG) EVERY 2 WEEKS
     Route: 030
  17. ELECTROLYTES (UNSPECIFIED) (+) POLYETHYLENE GLYCOL 3350 [Concomitant]
  18. BACTRIM DS [Concomitant]
     Dosage: 1 DF, BID
     Route: 048
  19. HUMULIN 70/30 [Concomitant]
     Dosage: 50 IU, BID
     Route: 058

REACTIONS (2)
  - Lumbar radiculopathy [Not Recovered/Not Resolved]
  - Leukopenia [Recovered/Resolved]
